FAERS Safety Report 4450927-X (Version None)
Quarter: 2004Q3

REPORT INFORMATION
  Report Type: 
  Country: None (occurrence: None)
  Receive Date: 20040913
  Receipt Date: 20040722
  Transmission Date: 20050211
  Serious: No
  Sender: FDA-Public Use
  Company Number: 2004-BP-06171BP(0)

PATIENT
  Age: 83 Year
  Sex: Male

DRUGS (2)
  1. SPIRIVA [Concomitant]
     Dosage: 18 MCG (18 MCG, OD), IH
     Route: 055
     Dates: start: 20040701
  2. SPIRIVA [Suspect]

REACTIONS (1)
  - ABDOMINAL DISTENSION [None]
